FAERS Safety Report 4884876-X (Version None)
Quarter: 2006Q1

REPORT INFORMATION
  Report Type: 
  Country: None (occurrence: None)
  Receive Date: 20060119
  Receipt Date: 20060113
  Transmission Date: 20060701
  Serious: Yes (Life-Threatening)
  Sender: FDA-Public Use
  Company Number: AU-GLAXOSMITHKLINE-B0406781A

PATIENT
  Age: 60 Year
  Sex: Male

DRUGS (5)
  1. FONDAPARINUX SODIUM [Suspect]
     Indication: ANGINA UNSTABLE
     Dosage: 2.5MG PER DAY
     Route: 058
     Dates: start: 20040104, end: 20040104
  2. ASPIRIN [Concomitant]
  3. CLOPIDOGREL [Concomitant]
  4. TIROFIBAN HYDROCHLORIDE [Concomitant]
  5. HEPARIN [Concomitant]

REACTIONS (1)
  - CORONARY ARTERY THROMBOSIS [None]
